FAERS Safety Report 8048910 (Version 2)
Quarter: 2015Q3

REPORT INFORMATION
  Report Type: Spontaneous
  Country: US (occurrence: US)
  Receive Date: 20110722
  Receipt Date: 20150921
  Transmission Date: 20151125
  Serious: No
  Sender: FDA-Public Use
  Company Number: US-BAYER-2011-015387

PATIENT
  Sex: Female
  Weight: 59 kg

DRUGS (2)
  1. BETASERON [Suspect]
     Active Substance: INTERFERON BETA-1B
     Indication: MULTIPLE SCLEROSIS
     Dosage: 0.25 MG, QOD
     Route: 058
  2. FAMPRIDINE [Concomitant]
     Active Substance: DALFAMPRIDINE
     Dosage: 10 MG, EVERY 12 HRS
     Route: 048

REACTIONS (5)
  - Rhinalgia [Unknown]
  - Epistaxis [None]
  - Nasal congestion [Unknown]
  - Rhinorrhoea [Unknown]
  - Injection site mass [None]
